FAERS Safety Report 6794479-8 (Version None)
Quarter: 2010Q2

REPORT INFORMATION
  Report Type: 
  Country: None (occurrence: None)
  Receive Date: 20100625
  Receipt Date: 20100615
  Transmission Date: 20101027
  Serious: Yes (Other)
  Sender: FDA-Public Use
  Company Number: US-PFIZER INC-2008025368

PATIENT
  Sex: Female

DRUGS (27)
  1. CELEBREX [Suspect]
     Dosage: 200 MG, 2X/DAY
  2. NORVASC [Suspect]
     Dosage: 10 MG, 1X/DAY
  3. ZETIA [Concomitant]
     Dosage: 10 MG, 1X/DAY
     Dates: start: 20090330
  4. RHINOCORT [Concomitant]
     Dosage: 2 SPRAYS, 1X/DAY
     Route: 045
     Dates: start: 20090327
  5. FOLIC ACID [Concomitant]
     Dosage: 1 MG, 1X/DAY
     Dates: start: 20090225
  6. SYNTHROID [Concomitant]
     Dosage: 50 UG, 1X/DAY
     Dates: start: 20090225
  7. NEXIUM [Concomitant]
     Dosage: 40 MG, 1X/DAY
     Dates: start: 20090327
  8. MYCOLOG-II [Concomitant]
     Dosage: UNK
     Dates: start: 20090327
  9. SOLARAZE [Concomitant]
     Indication: ROTATOR CUFF SYNDROME
     Dosage: UNK
     Dates: start: 20090225
  10. VAGIFEM [Concomitant]
     Dosage: 25 UG, 3X/WEEK
     Dates: start: 20081210
  11. LOVAZA [Concomitant]
     Dosage: 1200 MG, 1X/DAY
     Dates: start: 20090107
  12. VITAMIN D [Concomitant]
     Dosage: 50000 IU, 1X/WEEK
     Dates: start: 20080125
  13. METHOTREXATE [Concomitant]
     Dosage: 15 MG, 1X/WEEK
     Dates: start: 20080125
  14. HYDROXYCHLOROQUINE [Concomitant]
  15. MAGNESIUM SULFATE [Concomitant]
     Dosage: 250 MG, 1X/DAY
     Dates: start: 20080125
  16. DONNATAL [Concomitant]
     Dosage: UNK
     Dates: start: 20080125
  17. COENZYME Q10 [Concomitant]
     Dosage: 150 MG, 1X/DAY
     Dates: start: 20080125
  18. CALCIUM [Concomitant]
     Dosage: 500 MG, 1X/DAY
     Dates: start: 20080125
  19. ACETYLSALICYLIC ACID ENTERIC COATED [Concomitant]
     Dosage: 81 MG, 1X/DAY
     Dates: start: 20080125
  20. NITROGLYCERIN [Concomitant]
     Dosage: 0.4 MG, AS NEEDED
     Dates: start: 20090327
  21. IBANDRONATE SODIUM [Concomitant]
     Dosage: UNK
     Route: 042
     Dates: start: 20090225
  22. OSTEO BI-FLEX [Concomitant]
     Dosage: UNK
     Dates: start: 20090225
  23. CYCLOSPORINE [Concomitant]
     Dosage: 0.05 %, 2X/DAY
     Route: 047
     Dates: start: 20080125
  24. VITAMIN C [Concomitant]
     Dosage: 500 MG, 1X/DAY
  25. VITAMIN B-12 [Concomitant]
     Dosage: UNK
     Route: 042
  26. MIRALAX [Concomitant]
     Dosage: UNK
  27. CALCIUM WITH VITAMIN D [Concomitant]

REACTIONS (7)
  - BLOOD PRESSURE ABNORMAL [None]
  - CARDIAC DISORDER [None]
  - FIBROMYALGIA [None]
  - OSTEOARTHRITIS [None]
  - OSTEOPOROSIS [None]
  - RHEUMATOID ARTHRITIS [None]
  - SJOGREN'S SYNDROME [None]
